FAERS Safety Report 12370501 (Version 1)
Quarter: 2016Q2

REPORT INFORMATION
  Report Type: Spontaneous
  Country: US (occurrence: None)
  Receive Date: 20160513
  Receipt Date: 20160513
  Transmission Date: 20160815
  Serious: No
  Sender: FDA-Public Use
  Company Number: None

PATIENT
  Age: 60 Year
  Sex: Female

DRUGS (25)
  1. TRAMADOL. [Concomitant]
     Active Substance: TRAMADOL
  2. VALTREX [Concomitant]
     Active Substance: VALACYCLOVIR HYDROCHLORIDE
  3. ASTELIN [Concomitant]
     Active Substance: AZELASTINE HYDROCHLORIDE
  4. ENBREL [Suspect]
     Active Substance: ETANERCEPT
     Indication: PSORIATIC ARTHROPATHY
     Route: 058
     Dates: start: 20140207
  5. FLUTICASONE [Concomitant]
     Active Substance: FLUTICASONE\FLUTICASONE PROPIONATE
  6. CLOBETASOL [Concomitant]
     Active Substance: CLOBETASOL
  7. ZYRTEC [Concomitant]
     Active Substance: CETIRIZINE HYDROCHLORIDE
  8. ALBUTEROL. [Concomitant]
     Active Substance: ALBUTEROL
  9. FOLIC ACID. [Concomitant]
     Active Substance: FOLIC ACID
  10. KENALOG [Concomitant]
     Active Substance: TRIAMCINOLONE ACETONIDE
  11. L-LYSINE [Concomitant]
     Active Substance: LYSINE
  12. ULTRAM [Concomitant]
     Active Substance: TRAMADOL HYDROCHLORIDE
  13. FISH OIL [Concomitant]
     Active Substance: FISH OIL
  14. VALACYCLOVIR [Concomitant]
     Active Substance: VALACYCLOVIR HYDROCHLORIDE
  15. FLONASE [Concomitant]
     Active Substance: FLUTICASONE PROPIONATE
  16. AZASITE [Concomitant]
     Active Substance: AZITHROMYCIN MONOHYDRATE
  17. TYLENOL [Concomitant]
     Active Substance: ACETAMINOPHEN
  18. METFORMIN [Concomitant]
     Active Substance: METFORMIN HYDROCHLORIDE
  19. METHOTREXATE [Concomitant]
     Active Substance: METHOTREXATE
  20. MULTIVITAMIN [Concomitant]
     Active Substance: VITAMINS
  21. CIPROFLOXACIN. [Concomitant]
     Active Substance: CIPROFLOXACIN
  22. DOXYCYC [Concomitant]
  23. LEVOLFLOXACIN 750 MG. DR. REDDY^S LAB [Concomitant]
     Active Substance: LEVOFLOXACIN
  24. CALIPOTRIEN [Concomitant]
  25. METHOTREXATE [Suspect]
     Active Substance: METHOTREXATE

REACTIONS (2)
  - Drug dose omission [None]
  - Viral infection [None]

NARRATIVE: CASE EVENT DATE: 2016
